FAERS Safety Report 11721074 (Version 1)
Quarter: 2015Q4

REPORT INFORMATION
  Report Type: Spontaneous
  Country: US (occurrence: US)
  Receive Date: 20151110
  Receipt Date: 20151110
  Transmission Date: 20160304
  Serious: No
  Sender: FDA-Public Use
  Company Number: US-SA-2015SA172506

PATIENT
  Age: 63 Year
  Sex: Female

DRUGS (2)
  1. ALIROCUMAB PREFILLED PEN [Concomitant]
     Indication: LOW DENSITY LIPOPROTEIN INCREASED
     Dates: start: 20150921, end: 20151008
  2. PRALUENT [Suspect]
     Active Substance: ALIROCUMAB
     Indication: LOW DENSITY LIPOPROTEIN INCREASED
     Route: 058
     Dates: start: 20150921, end: 20151008

REACTIONS (1)
  - Injection site reaction [Recovered/Resolved]
